FAERS Safety Report 13373202 (Version 2)
Quarter: 2017Q2

REPORT INFORMATION
  Report Type: Spontaneous
  Country: FR (occurrence: FR)
  Receive Date: 20170327
  Receipt Date: 20170612
  Transmission Date: 20170830
  Serious: Yes (Hospitalization)
  Sender: FDA-Public Use
  Company Number: FR-JNJFOC-20170325627

PATIENT
  Age: 65 Year
  Sex: Female
  Weight: 60 kg

DRUGS (18)
  1. SKENAN [Concomitant]
     Active Substance: MORPHINE SULFATE
     Dosage: 1 IN THE MORNING AND 1 IN THE NIGHT
     Route: 048
  2. PARACETAMOL [Concomitant]
     Active Substance: ACETAMINOPHEN
     Route: 048
  3. TRUVADA [Suspect]
     Active Substance: EMTRICITABINE\TENOFOVIR DISOPROXIL FUMARATE
     Indication: ACQUIRED IMMUNODEFICIENCY SYNDROME
     Dosage: 200 MG/245MG IN EVENING
     Route: 048
     Dates: start: 20160527, end: 20170123
  4. LEXOMIL [Concomitant]
     Active Substance: BROMAZEPAM
     Dosage: 1/2 TABLET IN THE MORNING AND EVENING
     Route: 048
  5. PREZISTA [Suspect]
     Active Substance: DARUNAVIR ETHANOLATE
     Indication: ACQUIRED IMMUNODEFICIENCY SYNDROME
     Dosage: IN EVENING
     Route: 048
     Dates: start: 20160527
  6. SPASFON (PHLOROGLUCINOL, TRIMETHYLPHLOROGLUCINOL) [Concomitant]
     Active Substance: PHLOROGLUCINOL\1,3,5-TRIMETHOXYBENZENE
     Route: 065
  7. STILNOX [Concomitant]
     Active Substance: ZOLPIDEM TARTRATE
     Dosage: IN THE EVENING
     Route: 065
  8. ACTISKENAN [Concomitant]
     Active Substance: MORPHINE SULFATE
     Dosage: 4 DOSE A DAY
     Route: 065
  9. INEXIUM [Concomitant]
     Active Substance: ESOMEPRAZOLE
     Indication: GASTROINTESTINAL DISORDER THERAPY
     Dosage: IN THE EVENING
     Route: 065
  10. VALACICLOVIR [Concomitant]
     Active Substance: VALACYCLOVIR HYDROCHLORIDE
     Dosage: IN THE MORNING
     Route: 065
  11. UVEDOSE [Concomitant]
     Active Substance: CHOLECALCIFEROL
     Route: 065
     Dates: start: 20170208
  12. UVEDOSE [Concomitant]
     Active Substance: CHOLECALCIFEROL
     Route: 065
     Dates: start: 20170125
  13. PROPRANOLOL [Concomitant]
     Active Substance: PROPRANOLOL HYDROCHLORIDE
     Dosage: IN THE MORNING
     Route: 048
  14. ACUPAN [Concomitant]
     Active Substance: NEFOPAM HYDROCHLORIDE
     Dosage: 1 AMPOULE IF NEEDED PER 6 PER DAY
     Route: 048
  15. BACTRIM [Concomitant]
     Active Substance: SULFAMETHOXAZOLE\TRIMETHOPRIM
     Dosage: 400/80 MG 1 TABLET IN THE EVENING
     Route: 048
     Dates: end: 20170123
  16. FORSTEO [Concomitant]
     Active Substance: TERIPARATIDE
     Dosage: PER DAY DURING 18 MONTHS
     Route: 058
  17. NORVIR [Suspect]
     Active Substance: RITONAVIR
     Indication: ACQUIRED IMMUNODEFICIENCY SYNDROME
     Route: 048
     Dates: start: 20160527
  18. VENLAFAXINE [Concomitant]
     Active Substance: VENLAFAXINE HYDROCHLORIDE
     Dosage: IN THE MORNING
     Route: 048

REACTIONS (4)
  - Spinal compression fracture [Recovered/Resolved with Sequelae]
  - Fanconi syndrome [Recovered/Resolved with Sequelae]
  - Off label use [Unknown]
  - Osteoporosis [Recovered/Resolved with Sequelae]

NARRATIVE: CASE EVENT DATE: 20160527
